FAERS Safety Report 9314015 (Version 1)
Quarter: 2013Q2

REPORT INFORMATION
  Report Type: Spontaneous
  Country: US (occurrence: None)
  Receive Date: 20130524
  Receipt Date: 20130524
  Transmission Date: 20140414
  Serious: Yes (Hospitalization)
  Sender: FDA-Public Use
  Company Number: None

PATIENT
  Age: 73 Year
  Sex: Male

DRUGS (1)
  1. DULERA [Suspect]

REACTIONS (5)
  - Asthenia [None]
  - Tachycardia [None]
  - Fall [None]
  - Atrial fibrillation [None]
  - Hypersensitivity [None]
